FAERS Safety Report 9010165 (Version 2)
Quarter: 2013Q1

REPORT INFORMATION
  Report Type: Spontaneous
  Country: VN (occurrence: VN)
  Receive Date: 20130110
  Receipt Date: 20130115
  Transmission Date: 20140127
  Serious: Yes (Death)
  Sender: FDA-Public Use
  Company Number: PHHY2013VN001945

PATIENT
  Sex: Male

DRUGS (2)
  1. GLIVEC [Suspect]
     Indication: CHRONIC MYELOID LEUKAEMIA
     Dosage: 400 MG / DAY
     Route: 048
     Dates: start: 201109
  2. HYDREA [Concomitant]
     Indication: CHRONIC MYELOID LEUKAEMIA
     Dosage: UNK
     Route: 048
     Dates: start: 2009, end: 201109

REACTIONS (5)
  - Septic shock [Fatal]
  - Blast crisis in myelogenous leukaemia [Fatal]
  - Granulocytopenia [Unknown]
  - Pyrexia [Unknown]
  - Drug ineffective [Unknown]
